FAERS Safety Report 19408575 (Version 1)
Quarter: 2021Q2

REPORT INFORMATION
  Report Type: Spontaneous
  Country: DE (occurrence: DE)
  Receive Date: 20210612
  Receipt Date: 20210612
  Transmission Date: 20210717
  Serious: Yes (Hospitalization)
  Sender: FDA-Public Use
  Company Number: DE-TEVA-2021-DE-1920550

PATIENT
  Age: 79 Year
  Sex: Male

DRUGS (7)
  1. BISOPROLOL 5?1A PHARMA [Concomitant]
     Dosage: .5 DOSAGE FORMS DAILY; 5 MG, 0.5?0?0?0
     Route: 048
  2. ATORVASTATIN 20MG DOCPHARM [Concomitant]
     Dosage: 20 MILLIGRAM DAILY; 0?0?1?0
     Route: 048
  3. METAMIZOL TROPFEN?1A PHARMA [Concomitant]
     Dosage: 20 DROPS, IF NECESSARY UP TO 4 TIMES, DROPS
     Route: 048
  4. CARBOPLATIN. [Suspect]
     Active Substance: CARBOPLATIN
     Dosage: ACCORDING TO THE SCHEME
     Route: 042
  5. GEMCITABINE. [Suspect]
     Active Substance: GEMCITABINE
     Dosage: ACCORDING TO THE SCHEME
     Route: 042
  6. TAMSULOSIN ABZ 0,4MG [Concomitant]
     Dosage: .4 MILLIGRAM DAILY; 1?0?0?0
     Route: 048
  7. ASS 100 ? 1 A PHARMA TAH [Concomitant]
     Active Substance: ASPIRIN
     Dosage: 100 MILLIGRAM DAILY; 0?1?0?0
     Route: 048

REACTIONS (3)
  - Chills [Unknown]
  - Pyrexia [Unknown]
  - Flank pain [Unknown]
